FAERS Safety Report 7115366-1 (Version None)
Quarter: 2010Q4

REPORT INFORMATION
  Report Type: 
  Country: None (occurrence: None)
  Receive Date: 20101116
  Receipt Date: 20101116
  Transmission Date: 20110411
  Serious: Yes (Other)
  Sender: FDA-Public Use
  Company Number: None

PATIENT
  Age: 67 Year
  Sex: Female
  Weight: 77.1115 kg

DRUGS (2)
  1. ADVAIR DISKUS 500/50 [Suspect]
     Indication: ASTHMA
     Dosage: USE ONE INHALATION TWO TIMES A DAY
     Route: 055
  2. ADVAIR DISKUS 500/50 [Suspect]
     Indication: CHRONIC OBSTRUCTIVE PULMONARY DISEASE
     Dosage: USE ONE INHALATION TWO TIMES A DAY
     Route: 055

REACTIONS (3)
  - DRUG INEFFECTIVE [None]
  - DYSPNOEA [None]
  - WHEEZING [None]
